FAERS Safety Report 9400520 (Version 1)
Quarter: 2013Q3

REPORT INFORMATION
  Report Type: Spontaneous
  Country: US (occurrence: US)
  Receive Date: 20130715
  Receipt Date: 20130715
  Transmission Date: 20140515
  Serious: No
  Sender: FDA-Public Use
  Company Number: US-BAYER-2013-084773

PATIENT
  Age: 66 Year
  Sex: Female
  Weight: 61.68 kg

DRUGS (16)
  1. ALEVE CAPLET [Suspect]
     Indication: BACK PAIN
     Dosage: 1 DF, TID
     Route: 048
     Dates: start: 20130707, end: 20130707
  2. EVISTA [RALOXIFENE HYDROCHLORIDE] [Concomitant]
  3. LEVOTHYROXINE [Concomitant]
  4. ASPIRIN [Concomitant]
  5. OMEGA 3 FISH OIL [Concomitant]
  6. ESTER-C [Concomitant]
  7. CHONDROITIN W/GLUCOSAMINE [Concomitant]
  8. CALCIUM [CALCIUM] [Concomitant]
  9. POTASSIUM MAGNESIUM ASPARTATE [Concomitant]
  10. TURMERIC [Concomitant]
  11. VITAMIN D [Concomitant]
  12. STOOL SOFTENER [Concomitant]
  13. VITAMIN E [Concomitant]
  14. GINKGO BILOBA [Concomitant]
  15. BETA CAROTENE [Concomitant]
  16. COQ10 [Concomitant]

REACTIONS (4)
  - Rash [Recovering/Resolving]
  - Rash pruritic [Recovering/Resolving]
  - Rash [Recovering/Resolving]
  - Incorrect drug administration duration [None]
